FAERS Safety Report 4776435-4 (Version None)
Quarter: 2005Q3

REPORT INFORMATION
  Report Type: 
  Country: None (occurrence: None)
  Receive Date: 20050922
  Receipt Date: 20050913
  Transmission Date: 20060218
  Serious: Yes (Congenital Anomaly)
  Sender: FDA-Public Use
  Company Number: US-ABBOTT-05P-163-0311095-00

PATIENT
  Sex: Male
  Weight: 3.587 kg

DRUGS (1)
  1. DEPAKOTE [Suspect]
     Indication: DRUG EXPOSURE DURING PREGNANCY

REACTIONS (9)
  - AORTA HYPOPLASIA [None]
  - CARDIAC MURMUR [None]
  - CONGENITAL ANOMALY [None]
  - DRUG EXPOSURE DURING PREGNANCY [None]
  - FACIAL DYSMORPHISM [None]
  - GASTROOESOPHAGEAL REFLUX DISEASE [None]
  - LARYNGOMALACIA [None]
  - TRACHEOMALACIA [None]
  - VENTRICULAR HYPERTROPHY [None]
